FAERS Safety Report 5900055-9 (Version None)
Quarter: 2008Q3

REPORT INFORMATION
  Report Type: 
  Country: None (occurrence: None)
  Receive Date: 20080925
  Receipt Date: 20080925
  Transmission Date: 20090109
  Serious: Yes (Hospitalization, Disabling)
  Sender: FDA-Public Use
  Company Number: None

PATIENT
  Age: 29 Year
  Sex: Female
  Weight: 59 kg

DRUGS (1)
  1. HUMIRA [Suspect]
     Indication: RHEUMATOID ARTHRITIS
     Dosage: 40MG EVERY OTHER WEEK SQ
     Route: 058
     Dates: start: 20060101, end: 20080902

REACTIONS (12)
  - ALPHA HAEMOLYTIC STREPTOCOCCAL INFECTION [None]
  - ASPERGILLOSIS [None]
  - BIOPSY BRONCHUS ABNORMAL [None]
  - CHEST PAIN [None]
  - CULTURE POSITIVE [None]
  - EMPHYSEMA [None]
  - HYDROPNEUMOTHORAX [None]
  - LUNG ABSCESS [None]
  - PNEUMONIA NECROTISING [None]
  - PNEUMOTHORAX [None]
  - TACHYCARDIA [None]
  - TUBERCULOSIS [None]
